FAERS Safety Report 20453808 (Version 3)
Quarter: 2022Q2

REPORT INFORMATION
  Report Type: Spontaneous
  Country: JP (occurrence: JP)
  Receive Date: 20220210
  Receipt Date: 20220516
  Transmission Date: 20220721
  Serious: Yes (Death, Other)
  Sender: FDA-Public Use
  Company Number: JP-JAZZ-2022-JP-002764

PATIENT
  Age: 54 Year
  Sex: Male

DRUGS (2)
  1. DEFITELIO [Suspect]
     Active Substance: DEFIBROTIDE SODIUM
     Indication: Venoocclusive liver disease
     Dosage: 200 MILLIGRAM
     Route: 042
     Dates: start: 20211220, end: 20220131
  2. DEFITELIO [Suspect]
     Active Substance: DEFIBROTIDE SODIUM
     Dosage: 25 MILLIGRAM/KILOGRAM, QD
     Route: 042
     Dates: start: 20211220, end: 20220203

REACTIONS (4)
  - Activated partial thromboplastin time prolonged [Unknown]
  - Renal failure [Unknown]
  - Venoocclusive liver disease [Fatal]
  - Disease progression [Unknown]

NARRATIVE: CASE EVENT DATE: 20211220
